FAERS Safety Report 4920103-2 (Version None)
Quarter: 2006Q1

REPORT INFORMATION
  Report Type: 
  Country: None (occurrence: None)
  Receive Date: 20060216
  Receipt Date: 20060130
  Transmission Date: 20060701
  Serious: Yes (Death)
  Sender: FDA-Public Use
  Company Number: 2006EN000047

PATIENT
  Age: 2 Year
  Sex: Female

DRUGS (1)
  1. ADAGEN [Suspect]
     Indication: IMMUNODEFICIENCY CONGENITAL
     Dosage: 30 IU/KG; BIW; IM
     Route: 030

REACTIONS (9)
  - ANTIBODY TEST POSITIVE [None]
  - BLOOD IMMUNOGLOBULIN G INCREASED [None]
  - CATHETER SEPSIS [None]
  - CYTOMEGALOVIRUS INFECTION [None]
  - DISEASE RECURRENCE [None]
  - DRUG LEVEL DECREASED [None]
  - DRUG TOXICITY [None]
  - UNRELATED DONOR BONE MARROW TRANSPLANTATION THERAPY [None]
  - VIRAL INFECTION [None]
